FAERS Safety Report 7457095-0 (Version None)
Quarter: 2011Q2

REPORT INFORMATION
  Report Type: 
  Country: None (occurrence: None)
  Receive Date: 20110504
  Receipt Date: 20110420
  Transmission Date: 20111010
  Serious: Yes (Other)
  Sender: FDA-Public Use
  Company Number: DE-RANBAXY-2011RR-43779

PATIENT

DRUGS (1)
  1. VERATIDE [Suspect]
     Indication: HYPERTENSION
     Dosage: 1 AND 1/2 TABLETS EACH DAY

REACTIONS (2)
  - PARKINSON'S DISEASE [None]
  - TREMOR [None]
